FAERS Safety Report 21195813 (Version 1)
Quarter: 2022Q3

REPORT INFORMATION
  Report Type: Spontaneous
  Country: US (occurrence: None)
  Receive Date: 20220810
  Receipt Date: 20220810
  Transmission Date: 20221027
  Serious: Yes (Hospitalization)
  Sender: FDA-Public Use
  Company Number: None

PATIENT
  Age: 20 Year
  Sex: Male
  Weight: 92.1 kg

DRUGS (2)
  1. RISPERIDONE [Suspect]
     Active Substance: RISPERIDONE
     Indication: Autism spectrum disorder
     Dosage: FREQUENCY : TWICE A DAY;?
     Route: 048
     Dates: start: 20220301, end: 20220410
  2. RISPERIDONE [Concomitant]
     Active Substance: RISPERIDONE
     Dates: start: 20220301, end: 20220810

REACTIONS (3)
  - Treatment failure [None]
  - Aggression [None]
  - Homicidal ideation [None]

NARRATIVE: CASE EVENT DATE: 20220810
